FAERS Safety Report 8044151 (Version 6)
Quarter: 2013Q3

REPORT INFORMATION
  Report Type: Report from Study
  Country: US (occurrence: US)
  Receive Date: 20110719
  Receipt Date: 20130819
  Transmission Date: 20140515
  Serious: Yes (Congenital Anomaly)
  Sender: FDA-Public Use
  Company Number: US-B.I. PHARMACEUTICALS,INC./RIDGEFIELD-2011-BP-17382BP

PATIENT
  Age: 0 Day
  Sex: Male
  Weight: 2.41 kg

DRUGS (7)
  1. VIRAMUNE [Suspect]
     Indication: EXPOSURE DURING PREGNANCY
     Route: 064
     Dates: start: 20101101
  2. RETROVIR [Concomitant]
     Indication: EXPOSURE DURING PREGNANCY
     Route: 064
     Dates: start: 20110327, end: 20110327
  3. RETROVIR [Concomitant]
     Route: 064
     Dates: start: 20110327, end: 20110327
  4. LAMIVUDINE+ZIDOVUDINE [Concomitant]
     Indication: EXPOSURE DURING PREGNANCY
     Route: 064
     Dates: start: 20101101
  5. VALPROIC ACID [Concomitant]
     Indication: EXPOSURE DURING PREGNANCY
     Route: 064
  6. ALCOHOL [Concomitant]
     Indication: EXPOSURE DURING PREGNANCY
     Route: 064
  7. TOBACCO [Concomitant]
     Indication: EXPOSURE DURING PREGNANCY
     Route: 064

REACTIONS (2)
  - Polydactyly [Unknown]
  - Low birth weight baby [Unknown]
